FAERS Safety Report 5003769-0 (Version None)
Quarter: 2006Q2

REPORT INFORMATION
  Report Type: 
  Country: None (occurrence: None)
  Receive Date: 20060516
  Receipt Date: 20050823
  Transmission Date: 20061013
  Serious: Yes (Hospitalization, Disabling, Other)
  Sender: FDA-Public Use
  Company Number: US-MERCK-0508USA04098

PATIENT
  Age: 48 Year
  Sex: Male
  Weight: 111 kg

DRUGS (2)
  1. VIOXX [Suspect]
     Indication: ARTHRITIS
     Route: 048
     Dates: start: 20030501, end: 20031101
  2. ADVIL [Concomitant]
     Route: 065

REACTIONS (16)
  - ANGINA UNSTABLE [None]
  - BLOOD URINE PRESENT [None]
  - CHEST PAIN [None]
  - CORONARY ARTERY DISEASE [None]
  - DEPRESSED MOOD [None]
  - DEPRESSION [None]
  - DIABETES MELLITUS [None]
  - DYSLIPIDAEMIA [None]
  - DYSPNOEA [None]
  - FLANK PAIN [None]
  - HEPATITIS C [None]
  - HYPERLIPIDAEMIA [None]
  - MASS [None]
  - MYOCARDIAL INFARCTION [None]
  - PALPITATIONS [None]
  - ROAD TRAFFIC ACCIDENT [None]
